FAERS Safety Report 5799218-5 (Version None)
Quarter: 2008Q3

REPORT INFORMATION
  Report Type: 
  Country: None (occurrence: None)
  Receive Date: 20080702
  Receipt Date: 20080623
  Transmission Date: 20090109
  Serious: Yes (Death)
  Sender: FDA-Public Use
  Company Number: DE-PFIZER INC-2008046848

PATIENT
  Sex: Female

DRUGS (4)
  1. ZELDOX (CAPSULES) [Suspect]
     Indication: PSYCHOTIC DISORDER
     Route: 048
  2. ZELDOX (CAPSULES) [Suspect]
     Indication: SCHIZOPHRENIA
  3. FLUANXOL DEPOT [Concomitant]
  4. DOXEPIN HCL [Concomitant]

REACTIONS (1)
  - COMPLETED SUICIDE [None]
